FAERS Safety Report 5395144-4 (Version None)
Quarter: 2007Q3

REPORT INFORMATION
  Report Type: 
  Country: None (occurrence: None)
  Receive Date: 20070724
  Receipt Date: 20070702
  Transmission Date: 20080115
  Serious: Yes (Hospitalization)
  Sender: FDA-Public Use
  Company Number: ES-BAYER-200713379GDS

PATIENT
  Age: 78 Year
  Sex: Female
  Weight: 62 kg

DRUGS (10)
  1. SORAFENIB [Suspect]
     Indication: RENAL CELL CARCINOMA STAGE UNSPECIFIED
     Dosage: TOTAL DAILY DOSE: 800 MG
     Route: 048
     Dates: start: 20070414, end: 20070614
  2. CAPECITABINE [Suspect]
     Indication: RENAL CELL CARCINOMA STAGE UNSPECIFIED
     Route: 048
     Dates: start: 20070413, end: 20070608
  3. GEMCITABINE HCL [Suspect]
     Indication: RENAL CELL CARCINOMA STAGE UNSPECIFIED
     Route: 042
     Dates: start: 20070413, end: 20070601
  4. ENALAPRIL MALEATE [Concomitant]
     Indication: HYPERTENSION
     Route: 048
     Dates: start: 20070611, end: 20070616
  5. PROZAC [Concomitant]
     Indication: DEPRESSION
     Route: 048
  6. ORFIDAL [Concomitant]
     Indication: INSOMNIA
     Route: 048
  7. METAMIZOL [Concomitant]
     Indication: PAIN
     Route: 048
     Dates: start: 20070418
  8. LABETALOL HCL [Concomitant]
     Indication: HYPERTENSION
     Route: 042
     Dates: start: 20070616, end: 20070618
  9. CAPTOPRIL [Concomitant]
     Indication: HYPERTENSION
     Route: 048
     Dates: start: 20070616, end: 20070620
  10. PROPRANOLOL [Concomitant]
     Indication: HYPERTENSION
     Route: 048
     Dates: start: 20070618, end: 20070620

REACTIONS (1)
  - ARTERIAL THROMBOSIS [None]
